FAERS Safety Report 9751469 (Version 1)
Quarter: 2013Q4

REPORT INFORMATION
  Report Type: Spontaneous
  Country: CA (occurrence: CA)
  Receive Date: 20131212
  Receipt Date: 20131212
  Transmission Date: 20140711
  Serious: Yes (Other)
  Sender: FDA-Public Use
  Company Number: CHPA2013CA018341

PATIENT
  Age: 48 Year
  Sex: Female

DRUGS (1)
  1. BUCKLEY^S UNKNOWN [Suspect]
     Indication: NASOPHARYNGITIS
     Dosage: UNK
     Route: 048

REACTIONS (3)
  - Deafness [Not Recovered/Not Resolved]
  - Gait disturbance [Not Recovered/Not Resolved]
  - Pneumonia [Unknown]
